FAERS Safety Report 19462509 (Version 1)
Quarter: 2021Q2

REPORT INFORMATION
  Report Type: Report from Study
  Country: IN (occurrence: IN)
  Receive Date: 20210625
  Receipt Date: 20210625
  Transmission Date: 20210717
  Serious: Yes (Other)
  Sender: FDA-Public Use
  Company Number: NVSC2021IN104639

PATIENT
  Age: 62 Year
  Sex: Female

DRUGS (1)
  1. PIVIKTO [Suspect]
     Active Substance: ALPELISIB
     Indication: BREAST CANCER METASTATIC
     Dosage: 200 MG, QD
     Route: 048
     Dates: start: 20210426, end: 202105

REACTIONS (6)
  - Blood glucose increased [Unknown]
  - Feeding disorder [Not Recovered/Not Resolved]
  - Malignant neoplasm progression [Unknown]
  - Asthenia [Not Recovered/Not Resolved]
  - Breast cancer metastatic [Unknown]
  - Decreased appetite [Not Recovered/Not Resolved]

NARRATIVE: CASE EVENT DATE: 202104
